FAERS Safety Report 6688473-5 (Version None)
Quarter: 2010Q2

REPORT INFORMATION
  Report Type: 
  Country: None (occurrence: None)
  Receive Date: 20100420
  Receipt Date: 20100409
  Transmission Date: 20101027
  Serious: Yes (Other)
  Sender: FDA-Public Use
  Company Number: CA-JNJFOC-20100402827

PATIENT
  Age: 25 Year
  Sex: Female

DRUGS (9)
  1. REMICADE [Suspect]
     Indication: JUVENILE ARTHRITIS
     Route: 042
  2. REMICADE [Suspect]
     Dosage: STARTED THIS DOSES IN SPRING 2009
     Route: 042
  3. REMICADE [Suspect]
     Route: 042
  4. HYDROXYCHLOROQUINE SULFATE [Concomitant]
  5. METHOTREXATE [Concomitant]
  6. LEUKOVORIN [Concomitant]
  7. LEFLUNOMIDE [Concomitant]
  8. FSZ (ARTHRITIS) [Concomitant]
  9. PREMEDICATION [Concomitant]

REACTIONS (7)
  - ABNORMAL LOSS OF WEIGHT [None]
  - DIARRHOEA [None]
  - GASTROINTESTINAL PAIN [None]
  - INFUSION RELATED REACTION [None]
  - LEUKOPENIA [None]
  - LYMPHOID TISSUE HYPERPLASIA [None]
  - THERAPEUTIC RESPONSE DECREASED [None]
